FAERS Safety Report 8688033 (Version 2)
Quarter: 2012Q4

REPORT INFORMATION
  Report Type: Report from Study
  Country: AU (occurrence: AU)
  Receive Date: 20120727
  Receipt Date: 20121025
  Transmission Date: 20130627
  Serious: No
  Sender: FDA-Public Use
  Company Number: AU-ROCHE-1090167

PATIENT
  Age: 48 Year
  Sex: Male
  Weight: 80 kg

DRUGS (4)
  1. VEMURAFENIB [Suspect]
     Indication: MALIGNANT MELANOMA
     Route: 048
  2. PANADOL [Concomitant]
     Route: 065
     Dates: start: 20110613
  3. SOMAC (AUSTRALIA) [Concomitant]
     Route: 065
     Dates: start: 20111206
  4. VOLTAREN RAPIDE [Concomitant]
     Route: 065
     Dates: start: 20110914

REACTIONS (1)
  - Dysplastic naevus [Recovered/Resolved]
